FAERS Safety Report 8143122-4 (Version None)
Quarter: 2012Q1

REPORT INFORMATION
  Report Type: 
  Country: None (occurrence: None)
  Receive Date: 20120217
  Receipt Date: 20120213
  Transmission Date: 20120608
  Serious: No
  Sender: FDA-Public Use
  Company Number: US-PFIZER INC-2012040172

PATIENT
  Sex: Male
  Weight: 155.1 kg

DRUGS (1)
  1. LYRICA [Suspect]
     Indication: PERIPHERAL NERVE INJURY
     Dosage: 75 MG, 2X/DAY
     Route: 048
     Dates: end: 20120210

REACTIONS (1)
  - PAIN IN EXTREMITY [None]
